FAERS Safety Report 13662810 (Version 3)
Quarter: 2017Q4

REPORT INFORMATION
  Report Type: Report from Study
  Country: None (occurrence: IL)
  Receive Date: 20170619
  Receipt Date: 20171212
  Transmission Date: 20180320
  Serious: Yes (Hospitalization)
  Sender: FDA-Public Use
  Company Number: IL-ABBVIE-17K-082-2007025-00

PATIENT
  Age: 45 Year
  Sex: Female

DRUGS (2)
  1. HUMIRA [Suspect]
     Active Substance: ADALIMUMAB
     Indication: CROHN^S DISEASE
     Route: 058
     Dates: start: 20161204
  2. HUMIRA [Suspect]
     Active Substance: ADALIMUMAB
     Indication: CROHN^S DISEASE
     Route: 058

REACTIONS (12)
  - Crohn^s disease [Unknown]
  - Gastrointestinal viral infection [Unknown]
  - Immunodeficiency [Unknown]
  - Nausea [Unknown]
  - C-reactive protein increased [Not Recovered/Not Resolved]
  - Asthenia [Unknown]
  - Feeling abnormal [Unknown]
  - Drug specific antibody present [Unknown]
  - Drug effect incomplete [Not Recovered/Not Resolved]
  - Duodenitis [Unknown]
  - Appendicitis [Unknown]
  - Injection site pain [Recovered/Resolved]

NARRATIVE: CASE EVENT DATE: 2017
